FAERS Safety Report 4433777-X (Version None)
Quarter: 2004Q3

REPORT INFORMATION
  Report Type: 
  Country: None (occurrence: None)
  Receive Date: 20040824
  Receipt Date: 20040811
  Transmission Date: 20050211
  Serious: Yes (Other)
  Sender: FDA-Public Use
  Company Number: 2004052541

PATIENT
  Age: 61 Year
  Sex: Male
  Weight: 68.0396 kg

DRUGS (3)
  1. DILANTIN KAPSEAL [Suspect]
     Indication: CONVULSION
     Dosage: 400 MG (200 MG, 2 IN 1 D), ORAL
     Route: 048
  2. PHENYTOIN [Suspect]
     Indication: CONVULSION
  3. PHENOBARBITAL TAB [Concomitant]

REACTIONS (8)
  - BACK DISORDER [None]
  - CONDITION AGGRAVATED [None]
  - CONVULSION [None]
  - EXOSTOSIS [None]
  - GRAND MAL CONVULSION [None]
  - PHARMACEUTICAL PRODUCT COMPLAINT [None]
  - REFUSAL OF TREATMENT BY PATIENT [None]
  - ROAD TRAFFIC ACCIDENT [None]
